FAERS Safety Report 6203162-9 (Version None)
Quarter: 2009Q2

REPORT INFORMATION
  Report Type: 
  Country: None (occurrence: None)
  Receive Date: 20090526
  Receipt Date: 20090526
  Transmission Date: 20091009
  Serious: Yes (Hospitalization)
  Sender: FDA-Public Use
  Company Number: None

PATIENT
  Sex: Male
  Weight: 78 kg

DRUGS (3)
  1. FLUOROURACIL [Suspect]
     Dosage: 24500 MG
  2. LEUCOVORIN CALCIUM [Suspect]
     Dosage: 3500 MG
  3. ELOXATIN [Suspect]
     Dosage: 24500 MG

REACTIONS (8)
  - ANOREXIA [None]
  - BLOOD PRESSURE SYSTOLIC INCREASED [None]
  - BODY TEMPERATURE DECREASED [None]
  - DEHYDRATION [None]
  - FATIGUE [None]
  - HYDRONEPHROSIS [None]
  - RENAL FAILURE ACUTE [None]
  - RESPIRATORY RATE INCREASED [None]
